FAERS Safety Report 17705865 (Version 1)
Quarter: 2020Q2

REPORT INFORMATION
  Report Type: Spontaneous
  Country: RU (occurrence: RU)
  Receive Date: 20200424
  Receipt Date: 20200424
  Transmission Date: 20200714
  Serious: Yes (Death, Life-Threatening, Hospitalization, Other)
  Sender: FDA-Public Use
  Company Number: RU-STRIDES ARCOLAB LIMITED-2020SP005037

PATIENT
  Age: 13 Year
  Sex: Female

DRUGS (15)
  1. IFOSFAMIDE. [Suspect]
     Active Substance: IFOSFAMIDE
     Indication: EWING^S SARCOMA
     Dosage: UNK, 4 CYCLES
     Route: 065
  2. VANCOMYCIN [Suspect]
     Active Substance: VANCOMYCIN
     Indication: CANDIDA INFECTION
     Dosage: UNK
     Route: 065
  3. AMIKACIN. [Suspect]
     Active Substance: AMIKACIN
     Indication: CANDIDA INFECTION
     Dosage: UNK
     Route: 065
  4. ETOPOSIDE. [Suspect]
     Active Substance: ETOPOSIDE
     Indication: EWING^S SARCOMA
     Dosage: UNK, 4 CYCLES
     Route: 065
  5. FLUCONAZOLE. [Suspect]
     Active Substance: FLUCONAZOLE
     Indication: CANDIDA INFECTION
     Dosage: 6 MG/KG/DAY
     Route: 042
  6. DOXORUBICIN [Suspect]
     Active Substance: DOXORUBICIN
     Indication: EWING^S SARCOMA
     Dosage: UNK, 4 CYCLES
     Route: 065
  7. VINCRISTINE [Suspect]
     Active Substance: VINCRISTINE
     Indication: EWING^S SARCOMA
     Dosage: UNK, 4 CYCLES
     Route: 065
  8. FLUCONAZOLE. [Suspect]
     Active Substance: FLUCONAZOLE
     Dosage: 400 MILLIGRAM PER DAY
     Route: 048
  9. MEROPENEM. [Suspect]
     Active Substance: MEROPENEM
     Dosage: UNK, REINITIATION
     Route: 065
  10. MEROPENEM. [Suspect]
     Active Substance: MEROPENEM
     Dosage: UNK, DOSE ESCALATION
     Route: 065
  11. VANCOMYCIN [Suspect]
     Active Substance: VANCOMYCIN
     Dosage: UNK, REINITIATION
     Route: 065
  12. AMIKACIN. [Suspect]
     Active Substance: AMIKACIN
     Dosage: UNK, DOSE ESCALATION
     Route: 065
  13. FLUCONAZOLE. [Suspect]
     Active Substance: FLUCONAZOLE
     Dosage: UNK, REINITIATION
     Route: 065
  14. MEROPENEM. [Suspect]
     Active Substance: MEROPENEM
     Indication: CANDIDA INFECTION
     Dosage: UNK
     Route: 065
  15. AMIKACIN. [Suspect]
     Active Substance: AMIKACIN
     Dosage: UNK, REINITIATION
     Route: 065

REACTIONS (5)
  - Candida infection [Fatal]
  - Infection [Fatal]
  - Systemic candida [Fatal]
  - Off label use [Unknown]
  - Multiple organ dysfunction syndrome [Fatal]
